FAERS Safety Report 14914974 (Version 3)
Quarter: 2020Q3

REPORT INFORMATION
  Report Type: Spontaneous
  Country: GB (occurrence: DE)
  Receive Date: 20180518
  Receipt Date: 20200826
  Transmission Date: 20201102
  Serious: Yes (Death, Other)
  Sender: FDA-Public Use
  Company Number: GB-BAUSCH-BL-2018-014119

PATIENT
  Age: 58 Year
  Sex: Female
  Weight: 54 kg

DRUGS (64)
  1. ERYPO (EPOETIN ALFA) [Suspect]
     Active Substance: ERYTHROPOIETIN
     Route: 058
     Dates: start: 19950114, end: 19950114
  2. DULCOLAX NOS [Suspect]
     Active Substance: BISACODYL OR DOCUSATE SODIUM
     Indication: CONSTIPATION
     Route: 054
     Dates: start: 19950115, end: 19950115
  3. ERYPO (ERYTHROPOIETIN HUMAN) [Suspect]
     Active Substance: ERYTHROPOIETIN
     Route: 058
     Dates: start: 19950117, end: 19950117
  4. IMUREK [Suspect]
     Active Substance: AZATHIOPRINE
     Route: 048
     Dates: start: 19950119, end: 19950119
  5. FLUIMUCIL [Suspect]
     Active Substance: ACETYLCYSTEINE
     Indication: COUGH
     Route: 048
     Dates: start: 19950120, end: 19950331
  6. ERYPO (EPOETIN ALFA) [Suspect]
     Active Substance: ERYTHROPOIETIN
     Route: 058
     Dates: start: 19950117, end: 19950117
  7. METALCAPTASE [Suspect]
     Active Substance: PENICILLAMINE
     Indication: SCLERODERMA
     Route: 048
     Dates: start: 19941229, end: 19950124
  8. ROHYPNOL [Suspect]
     Active Substance: FLUNITRAZEPAM
     Indication: SLEEP DISORDER
     Route: 048
     Dates: start: 19950114, end: 19950123
  9. ASPIRIN. [Suspect]
     Active Substance: ASPIRIN
     Indication: OFF LABEL USE
  10. NOVALGIN (METAMIZOLE SODIUM) [Suspect]
     Active Substance: METAMIZOLE SODIUM
     Indication: PYREXIA
     Route: 042
     Dates: start: 19941228, end: 19941228
  11. NACL [Concomitant]
     Active Substance: SODIUM CHLORIDE
     Indication: HYPONATRAEMIA
     Route: 042
     Dates: start: 19950117, end: 19950117
  12. NEUPOGEN [Concomitant]
     Active Substance: FILGRASTIM
     Indication: LEUKOPENIA
     Route: 058
     Dates: start: 19950124, end: 19950124
  13. LOPIRIN COR [Concomitant]
     Active Substance: CAPTOPRIL
     Indication: HYPERTENSION
     Route: 048
     Dates: start: 19941229, end: 19941229
  14. CLEMASTINE [Concomitant]
     Active Substance: CLEMASTINE
     Indication: HYPERSENSITIVITY
     Route: 042
     Dates: start: 19950117, end: 19950117
  15. ANTRA [Concomitant]
     Active Substance: OMEPRAZOLE
     Indication: ULCER
     Route: 048
     Dates: start: 19950118, end: 19950124
  16. PASPERTIN [Concomitant]
     Indication: NAUSEA
     Route: 048
     Dates: start: 19941228, end: 19941228
  17. SODIUM BICARBONATE. [Concomitant]
     Active Substance: SODIUM BICARBONATE
     Indication: ACIDOSIS
     Route: 042
     Dates: start: 19950118, end: 19950118
  18. ENALAPRIL MALEATE. [Suspect]
     Active Substance: ENALAPRIL MALEATE
     Indication: OFF LABEL USE
  19. TRENTAL [Suspect]
     Active Substance: PENTOXIFYLLINE
     Indication: OFF LABEL USE
  20. TRAMAL [Concomitant]
     Active Substance: TRAMADOL
     Indication: PAIN
     Dosage: DOSAGE FORM: UNSPECIFIED
     Route: 048
     Dates: start: 19950118, end: 19950121
  21. ADALAT [Concomitant]
     Active Substance: NIFEDIPINE
     Indication: HYPERTENSION
     Route: 048
     Dates: start: 19941228, end: 19941228
  22. REMESTAN [Suspect]
     Active Substance: TEMAZEPAM
     Indication: SLEEP DISORDER
     Route: 048
     Dates: end: 19950113
  23. IMUREK [Suspect]
     Active Substance: AZATHIOPRINE
     Indication: SCLERODERMA
     Route: 048
     Dates: start: 19950113, end: 19950116
  24. LASIX [Suspect]
     Active Substance: FUROSEMIDE
     Indication: RENAL FAILURE
     Route: 048
     Dates: start: 19950113, end: 19950331
  25. ERYPO (ERYTHROPOIETIN HUMAN) [Suspect]
     Active Substance: ERYTHROPOIETIN
     Route: 058
     Dates: start: 19950114, end: 19950114
  26. PIRETANIDE [Concomitant]
     Active Substance: PIRETANIDE
     Indication: HYPERTENSION
     Route: 048
     Dates: start: 19941228, end: 19941228
  27. IMODIUM [Concomitant]
     Active Substance: LOPERAMIDE HYDROCHLORIDE
     Indication: DIARRHOEA
     Route: 048
     Dates: start: 19950118, end: 19950119
  28. ERYTHROCIN [Concomitant]
     Active Substance: ERYTHROMYCIN LACTOBIONATE
     Indication: INFECTION
     Route: 042
     Dates: start: 19950118, end: 19950118
  29. ARELIX HEXAL [Concomitant]
     Indication: HYPERTENSION
     Route: 048
     Dates: start: 19941228, end: 19941228
  30. TAVEGIL [Concomitant]
     Active Substance: CLEMASTINE FUMARATE
     Indication: HYPERSENSITIVITY
     Route: 042
     Dates: start: 19950117, end: 19950117
  31. SENNA [Suspect]
     Active Substance: SENNA LEAF\SENNOSIDES\SENNOSIDES A AND B
     Indication: CONSTIPATION
     Route: 048
     Dates: start: 19950113, end: 19950114
  32. FLUIMUCIL [Suspect]
     Active Substance: ACETYLCYSTEINE
     Route: 048
     Dates: start: 19950117, end: 19950118
  33. LASIX [Suspect]
     Active Substance: FUROSEMIDE
     Indication: OFF LABEL USE
  34. BEN?U?RON [Suspect]
     Active Substance: ACETAMINOPHEN
     Indication: PYREXIA
     Route: 054
     Dates: start: 19950117, end: 19950117
  35. AUGMENTIN [Suspect]
     Active Substance: AMOXICILLIN\CLAVULANATE POTASSIUM
     Indication: INFECTION
     Route: 048
     Dates: start: 19950117, end: 19950117
  36. DIFLUCAN [Concomitant]
     Active Substance: FLUCONAZOLE
     Indication: FUNGAL INFECTION
     Route: 048
     Dates: start: 19950120, end: 19950124
  37. ISOPTIN [Concomitant]
     Active Substance: VERAPAMIL HYDROCHLORIDE
     Indication: ARRHYTHMIA
     Route: 048
     Dates: start: 19941228, end: 19941228
  38. URBASON [Concomitant]
     Active Substance: METHYLPREDNISOLONE
     Indication: SCLERODERMA
     Route: 048
     Dates: end: 19950331
  39. ZANTAC [Concomitant]
     Active Substance: RANITIDINE HYDROCHLORIDE
     Indication: HYPERSENSITIVITY
     Route: 042
     Dates: start: 19950117, end: 19950117
  40. NATRIUMHYDROGENCARBONAT [Concomitant]
     Active Substance: SODIUM BICARBONATE
     Indication: ACIDOSIS
     Route: 042
     Dates: start: 19950118, end: 19950118
  41. TEMGESIC [Concomitant]
     Active Substance: BUPRENORPHINE HYDROCHLORIDE
     Indication: PAIN
     Route: 060
     Dates: start: 19950124, end: 19950124
  42. TRENTAL [Suspect]
     Active Substance: PENTOXIFYLLINE
     Indication: CARDIOVASCULAR DISORDER
     Route: 065
     Dates: start: 19950117, end: 19950124
  43. ERYPO (EPOETIN ALFA) [Suspect]
     Active Substance: ERYTHROPOIETIN
     Route: 058
     Dates: start: 19950110, end: 19950110
  44. ASPIRIN. [Suspect]
     Active Substance: ASPIRIN
     Indication: ARRHYTHMIA
     Route: 048
     Dates: end: 19950331
  45. TAZOBAC [Suspect]
     Active Substance: PIPERACILLIN SODIUM\TAZOBACTAM SODIUM
     Indication: INFECTION
     Route: 042
     Dates: end: 19950101
  46. MONO EMBOLEX [Concomitant]
     Active Substance: CERTOPARIN SODIUM
     Indication: THROMBOSIS PROPHYLAXIS
     Route: 058
     Dates: end: 19950331
  47. ISOPTIN [Concomitant]
     Active Substance: VERAPAMIL HYDROCHLORIDE
     Route: 048
     Dates: start: 19941229, end: 19950124
  48. PEPDUL [Concomitant]
     Active Substance: FAMOTIDINE
     Indication: ULCER
     Route: 048
     Dates: end: 19950117
  49. ENALAPRIL MALEATE. [Suspect]
     Active Substance: ENALAPRIL MALEATE
     Indication: HYPERTENSION
     Route: 048
     Dates: start: 19941230, end: 19950124
  50. DULCOLAX NOS [Suspect]
     Active Substance: BISACODYL OR DOCUSATE SODIUM
     Indication: OFF LABEL USE
  51. NOVALGIN (METAMIZOLE SODIUM) [Suspect]
     Active Substance: METAMIZOLE SODIUM
     Indication: OFF LABEL USE
  52. IOXITALAMATE MEGLUMINE [Suspect]
     Active Substance: MEGLUMINE IOXITHALAMATE
     Indication: X-RAY
     Route: 048
     Dates: start: 19950115, end: 19950115
  53. ERYPO (EPOETIN ALFA) [Suspect]
     Active Substance: ERYTHROPOIETIN
     Indication: ANAEMIA
     Route: 058
     Dates: start: 19950103, end: 19950103
  54. ERYPO (EPOETIN ALFA) [Suspect]
     Active Substance: ERYTHROPOIETIN
     Route: 058
     Dates: start: 19950105, end: 19950105
  55. ERYPO (EPOETIN ALFA) [Suspect]
     Active Substance: ERYTHROPOIETIN
     Route: 058
     Dates: start: 19950107, end: 19950107
  56. METALCAPTASE [Suspect]
     Active Substance: PENICILLAMINE
     Indication: OFF LABEL USE
  57. ERYPO (ERYTHROPOIETIN HUMAN) [Suspect]
     Active Substance: ERYTHROPOIETIN
     Indication: ANAEMIA
     Dates: start: 19950110, end: 19950110
  58. ERYPO (ERYTHROPOIETIN HUMAN) [Suspect]
     Active Substance: ERYTHROPOIETIN
     Route: 058
     Dates: start: 19950105, end: 19950105
  59. ERYPO (ERYTHROPOIETIN HUMAN) [Suspect]
     Active Substance: ERYTHROPOIETIN
     Route: 058
     Dates: start: 19950303, end: 19950303
  60. SOLU?DECORTIN?H [Concomitant]
     Active Substance: PREDNISOLONE SODIUM SUCCINATE
     Indication: HYPERSENSITIVITY
     Route: 042
     Dates: start: 19950117, end: 19950117
  61. SAROTEN [Concomitant]
     Active Substance: AMITRIPTYLINE
     Indication: DEPRESSION
     Route: 048
     Dates: start: 19950124, end: 19950331
  62. SODIUM CITRATE. [Concomitant]
     Active Substance: SODIUM CITRATE
     Indication: METABOLIC ACIDOSIS
     Route: 048
     Dates: start: 19950119, end: 19950131
  63. MONO?EMBOLEX [Concomitant]
     Active Substance: CERTOPARIN SODIUM
     Indication: THROMBOSIS PROPHYLAXIS
     Route: 058
     Dates: end: 19950331
  64. CALCIUM CITRATE [Concomitant]
     Active Substance: CALCIUM CITRATE
     Indication: METABOLIC ACIDOSIS
     Route: 048
     Dates: start: 19950119, end: 19950331

REACTIONS (14)
  - Renal failure [Fatal]
  - Blood urea increased [Unknown]
  - Rash [Unknown]
  - Toxic epidermal necrolysis [Fatal]
  - Off label use [Unknown]
  - Pruritus [Unknown]
  - Stevens-Johnson syndrome [Unknown]
  - Blister [Unknown]
  - Lymphocytosis [Unknown]
  - Pneumonia [Unknown]
  - Blood lactate dehydrogenase increased [Unknown]
  - Brain injury [Fatal]
  - Leukocytosis [Unknown]
  - Blood creatinine increased [Unknown]

NARRATIVE: CASE EVENT DATE: 19950117
